FAERS Safety Report 19490279 (Version 1)
Quarter: 2021Q3

REPORT INFORMATION
  Report Type: Spontaneous
  Country: DE (occurrence: DE)
  Receive Date: 20210705
  Receipt Date: 20210705
  Transmission Date: 20211014
  Serious: Yes (Hospitalization)
  Sender: FDA-Public Use
  Company Number: DE-TEVA-2021-DE-1928330

PATIENT
  Age: 69 Year
  Sex: Female
  Weight: 49 kg

DRUGS (15)
  1. LEVOTHYROXIN?NATRIUM [Concomitant]
     Active Substance: LEVOTHYROXINE SODIUM
     Dosage: 25 MICROGRAM DAILY;  1?0?0?0,
     Route: 048
  2. ACETYLCYSTEINE. [Concomitant]
     Active Substance: ACETYLCYSTEINE
     Dosage: 600 MILLIGRAM DAILY;  1?0?0?0,
     Route: 048
  3. FRAGMIN P 2500I.E. [Concomitant]
     Dosage: 1 DOSAGE FORMS DAILY; 0?0?1?0, PRE?FILLED SYRINGES
     Route: 058
  4. GEMCITABINE. [Suspect]
     Active Substance: GEMCITABINE
     Dosage: NK MG
  5. MACROGOL HEXAL PLUS ELEKTROLYTE [Concomitant]
     Active Substance: POLYETHYLENE GLYCOL 3350\POTASSIUM CHLORIDE\SODIUM BICARBONATE\SODIUM CHLORIDE
     Dosage: 1 DOSAGE FORMS DAILY; 1?0?0?0
     Route: 048
  6. LAXANS?RATIOPHARM 7,5MG/ML PICO [Concomitant]
     Dosage: 7 DOSAGE FORMS DAILY; ?7?0?0?0, DROPS
     Route: 048
  7. MAALOXAN 25MVAL BEUTEL [Concomitant]
     Dosage: REQUIREMENT
     Route: 048
  8. PANTOPRAZOL [Concomitant]
     Active Substance: PANTOPRAZOLE SODIUM
     Dosage: 40 MILLIGRAM DAILY;  1?0?0?0,
     Route: 048
  9. CANDESARTAN. [Concomitant]
     Active Substance: CANDESARTAN
     Dosage: 4 MILLIGRAM DAILY;  1?0?0?0,
     Route: 048
  10. MORPHIN [Concomitant]
     Active Substance: MORPHINE
     Dosage: 20 MILLIGRAM DAILY;   1?0?1?0,
     Route: 048
  11. MORPHIN MERCK 2% [Concomitant]
     Dosage: REQUIREMENT 4, DROPS
     Route: 048
  12. TAVOR 1,0MG EXPIDET [Concomitant]
     Route: 049
  13. CARBOPLATIN. [Suspect]
     Active Substance: CARBOPLATIN
     Dosage: NK MG
  14. METAMIZOL [Concomitant]
     Active Substance: METAMIZOLE SODIUM
     Dosage: 120 DOSAGE FORMS DAILY; 500 MG / ML, 30?30?30?30, DROPS
     Route: 048
  15. COLECALCIFEROL (VITAMIN D) [Concomitant]
     Active Substance: CHOLECALCIFEROL
     Dosage: 20,000 IU, FRIDAY 1,
     Route: 048

REACTIONS (3)
  - Chromaturia [Recovering/Resolving]
  - Pyrexia [Recovering/Resolving]
  - Flank pain [Recovering/Resolving]
